FAERS Safety Report 5422265-X (Version None)
Quarter: 2007Q3

REPORT INFORMATION
  Report Type: 
  Country: None (occurrence: None)
  Receive Date: 20070821
  Receipt Date: 20070821
  Transmission Date: 20080115
  Serious: Yes (Death, Life-Threatening, Hospitalization)
  Sender: FDA-Public Use
  Company Number: None

PATIENT
  Age: 86 Year
  Sex: Male

DRUGS (10)
  1. WARFARIN SODIUM [Suspect]
     Indication: ATRIAL FIBRILLATION
     Dosage: PO
     Route: 048
  2. LISINOPRIL [Concomitant]
  3. GLYBURIDE [Concomitant]
  4. NEXIUM [Concomitant]
  5. COREG [Concomitant]
  6. ZOCOR [Concomitant]
  7. DIGOXIN [Concomitant]
  8. GEMFIBROZIL [Concomitant]
  9. NITROGLYCERIN [Concomitant]
  10. COSOPT [Concomitant]

REACTIONS (4)
  - COAGULOPATHY [None]
  - FALL [None]
  - SUBDURAL HAEMATOMA [None]
  - UNRESPONSIVE TO STIMULI [None]
